FAERS Safety Report 12646348 (Version 1)
Quarter: 2020Q3

REPORT INFORMATION
  Report Type: Report from Study
  Country: FR (occurrence: FR)
  Receive Date: 20160812
  Receipt Date: 20160812
  Transmission Date: 20201104
  Serious: Yes (Hospitalization, Other)
  Sender: FDA-Public Use
  Company Number: FR-BAXTER-2016BAX041245

PATIENT
  Age: 75 Year
  Sex: Female

DRUGS (36)
  1. PREDNISONE. [Suspect]
     Active Substance: PREDNISONE
     Dosage: LAST DOSE PRIOR TO THE SECOND EPISODE OF FEBRILE NEUTROPENIA
     Route: 048
     Dates: start: 20150927
  2. NEUPOGEN [Concomitant]
     Active Substance: FILGRASTIM
     Route: 058
     Dates: start: 20150817, end: 20150829
  3. NEORECORMON [Concomitant]
     Active Substance: ERYTHROPOIETIN
     Indication: ANAEMIA
     Dosage: 30000 UNITS NOT REPORTED
     Route: 058
     Dates: start: 20150603
  4. PREDNISONE. [Suspect]
     Active Substance: PREDNISONE
     Indication: B-CELL LYMPHOMA
     Route: 048
     Dates: start: 20150430
  5. DOXORUBICIN [Suspect]
     Active Substance: DOXORUBICIN
     Indication: B-CELL LYMPHOMA
     Route: 042
     Dates: start: 20150505
  6. PANTOPRAZOLE [Concomitant]
     Active Substance: PANTOPRAZOLE
     Indication: INFECTION PROPHYLAXIS
     Route: 065
     Dates: start: 20150715, end: 20150923
  7. PRIMPERAN [Concomitant]
     Active Substance: METOCLOPRAMIDE HYDROCHLORIDE
     Indication: NAUSEA
     Route: 048
     Dates: start: 20150506
  8. TOBRADEX [Concomitant]
     Active Substance: DEXAMETHASONE\TOBRAMYCIN
     Indication: KERATITIS
     Route: 047
     Dates: start: 20150923, end: 20150929
  9. POLATUZUMAB VEDOTIN. [Suspect]
     Active Substance: POLATUZUMAB VEDOTIN
     Indication: B-CELL LYMPHOMA
     Dosage: PERFUSION
     Route: 042
     Dates: start: 20150506
  10. RITUXIMAB. [Suspect]
     Active Substance: RITUXIMAB
     Indication: B-CELL LYMPHOMA
     Dosage: INFUSION
     Route: 042
     Dates: start: 20150505
  11. DOXORUBICIN [Suspect]
     Active Substance: DOXORUBICIN
     Route: 042
     Dates: start: 20150811
  12. BACTRIM [Concomitant]
     Active Substance: SULFAMETHOXAZOLE\TRIMETHOPRIM
     Indication: PRODUCT USED FOR UNKNOWN INDICATION
     Route: 048
     Dates: start: 20150506
  13. NEUPOGEN [Concomitant]
     Active Substance: FILGRASTIM
     Route: 058
     Dates: start: 20150928, end: 20151007
  14. UROMITEXAN 1 G/10 ML, SOLUTION INJECTABLE POUR PERFUSION EN FLACON [Suspect]
     Active Substance: MESNA
     Route: 042
     Dates: start: 20150923, end: 20150923
  15. ENDOXAN 1000 MG, POUDRE POUR SOLUTION INJECTABLE [Suspect]
     Active Substance: CYCLOPHOSPHAMIDE
     Dosage: LAST DOSE PRIOR TO THE FIRST EPISODE OF FEBRILE NEUTROPENIA
     Route: 042
     Dates: start: 20150811
  16. RITUXIMAB. [Suspect]
     Active Substance: RITUXIMAB
     Dosage: LAST DOSE PRIOR TO THE SECOND EPISODE OF FEBRILE NEUTROPENIA
     Route: 042
     Dates: start: 20150923
  17. MOVICOL [Concomitant]
     Active Substance: POLYETHYLENE GLYCOL 3350\POTASSIUM CHLORIDE\SODIUM BICARBONATE\SODIUM CHLORIDE
     Indication: PRODUCT USED FOR UNKNOWN INDICATION
     Route: 065
  18. UROMITEXAN 1 G/10 ML, SOLUTION INJECTABLE POUR PERFUSION EN FLACON [Suspect]
     Active Substance: MESNA
     Indication: PRODUCT USED FOR UNKNOWN INDICATION
     Route: 042
     Dates: start: 20150811, end: 20150811
  19. TRIMETHOPRIME [Concomitant]
     Indication: BACTERIAL INFECTION
     Route: 048
     Dates: start: 20150506
  20. INEXIUM [Concomitant]
     Active Substance: ESOMEPRAZOLE
     Route: 048
     Dates: start: 20150923, end: 20150927
  21. ENDOXAN 1000 MG, POUDRE POUR SOLUTION INJECTABLE [Suspect]
     Active Substance: CYCLOPHOSPHAMIDE
     Indication: B-CELL LYMPHOMA
     Route: 042
     Dates: start: 20150505
  22. ENDOXAN 1000 MG, POUDRE POUR SOLUTION INJECTABLE [Suspect]
     Active Substance: CYCLOPHOSPHAMIDE
     Dosage: LAST DOSE PRIOR TO THE SECOND EPISODE OF FEBRILE NEUTROPENIA
     Route: 042
     Dates: start: 20150923
  23. POLATUZUMAB VEDOTIN. [Suspect]
     Active Substance: POLATUZUMAB VEDOTIN
     Dosage: LAST DOSE PRIOR TO THE SECOND EPISODE OF FEBRILE NEUTROPENIA
     Route: 042
     Dates: start: 20150923
  24. RITUXIMAB. [Suspect]
     Active Substance: RITUXIMAB
     Dosage: LAST DOSE PRIOR TO THE FIRST EPISODE OF FEBRILE NEUTROPENIA
     Route: 042
     Dates: start: 20150811
  25. ZELITREX [Concomitant]
     Active Substance: VALACYCLOVIR HYDROCHLORIDE
     Indication: VIRAL INFECTION
     Route: 048
     Dates: start: 20150506
  26. NEUPOGEN [Concomitant]
     Active Substance: FILGRASTIM
     Indication: LEUKOPENIA
     Route: 058
     Dates: start: 20150622
  27. DOXORUBICIN [Suspect]
     Active Substance: DOXORUBICIN
     Route: 042
     Dates: start: 20150923
  28. NEUPOGEN [Concomitant]
     Active Substance: FILGRASTIM
     Route: 058
     Dates: start: 20150914, end: 20150917
  29. SULFAMETHOXAZOLE [Concomitant]
     Active Substance: SULFAMETHOXAZOLE
     Indication: BACTERIAL INFECTION
     Route: 048
     Dates: start: 20150506
  30. POLATUZUMAB VEDOTIN. [Suspect]
     Active Substance: POLATUZUMAB VEDOTIN
     Dosage: 1.8 MG/KG/120 MG; LAST DOSE PRIOR TO THE FIRST EPISODE OF FEBRILE NEUTROPENIA
     Route: 042
     Dates: start: 20150811
  31. PREDNISONE. [Suspect]
     Active Substance: PREDNISONE
     Dosage: LAST DOSE PRIOR TO THE FIRST EPISODE OF FEBRILE NEUTROPENIA
     Route: 048
     Dates: start: 20150815
  32. LEDERFOLINE [Concomitant]
     Active Substance: LEUCOVORIN CALCIUM
     Indication: ANAEMIA
     Route: 048
     Dates: start: 20150506
  33. NEUPOGEN [Concomitant]
     Active Substance: FILGRASTIM
     Route: 058
     Dates: start: 20150907, end: 20150913
  34. INEXIUM [Concomitant]
     Active Substance: ESOMEPRAZOLE
     Indication: GASTRIC ULCER
     Route: 048
     Dates: start: 20150811, end: 20150815
  35. INEXIUM [Concomitant]
     Active Substance: ESOMEPRAZOLE
     Route: 048
     Dates: start: 20150902, end: 20150906
  36. TIORFAN [Concomitant]
     Active Substance: RACECADOTRIL
     Indication: DIARRHOEA
     Route: 048
     Dates: start: 20150930, end: 20151015

REACTIONS (3)
  - Febrile neutropenia [Recovered/Resolved]
  - Campylobacter gastroenteritis [Unknown]
  - Febrile neutropenia [Recovered/Resolved]

NARRATIVE: CASE EVENT DATE: 20150821
